FAERS Safety Report 5800774-9 (Version None)
Quarter: 2008Q3

REPORT INFORMATION
  Report Type: 
  Country: None (occurrence: None)
  Receive Date: 20080701
  Receipt Date: 20080616
  Transmission Date: 20090109
  Serious: Yes (Death)
  Sender: FDA-Public Use
  Company Number: A-CH2008-20725

PATIENT
  Age: 55 Year
  Sex: Female

DRUGS (12)
  1. TRACLEER [Suspect]
     Indication: PULMONARY HYPERTENSION
     Dosage: 125 MG, BID, ORAL; 62.5 MG, BID, ORAL
     Route: 048
     Dates: start: 20031014, end: 20031114
  2. TRACLEER [Suspect]
     Indication: PULMONARY HYPERTENSION
     Dosage: 125 MG, BID, ORAL; 62.5 MG, BID, ORAL
     Route: 048
     Dates: start: 20031115, end: 20080415
  3. PLAQUENIL [Concomitant]
  4. ENOXAPARIN SODIUM [Concomitant]
  5. PREDNICORT (PREDNISOLONE) [Concomitant]
  6. BUMETANIDE [Concomitant]
  7. SERETIDE (SALMETEROL XINAFOATE, FLUTICASONE PROPIONATE) [Concomitant]
  8. SPIRONOLACTONE [Concomitant]
  9. ACETYLCYSTEINE [Concomitant]
  10. PANTOPRAZOLE SODIUM [Concomitant]
  11. CALCICHEW D3 (COLECALCIFEROL, CALCIUM CARBONATE) [Concomitant]
  12. ACTONEL [Concomitant]

REACTIONS (5)
  - INFECTION [None]
  - LUNG INFILTRATION [None]
  - PNEUMONIA [None]
  - RECTAL HAEMORRHAGE [None]
  - RESPIRATORY FAILURE [None]
